FAERS Safety Report 5913110-4 (Version None)
Quarter: 2008Q3

REPORT INFORMATION
  Report Type: 
  Country: None (occurrence: None)
  Receive Date: 20080928
  Receipt Date: 20080928
  Transmission Date: 20090109
  Serious: Yes (Other)
  Sender: FDA-Public Use
  Company Number: None

PATIENT
  Sex: Female
  Weight: 51.7101 kg

DRUGS (2)
  1. DICLOFENAC 50MG EC TAB SAND [Suspect]
     Indication: ARTHRITIS
     Dosage: 50MG UP TO 3 DAILY
     Dates: start: 20080730
  2. DICLOFENAC 50MG EC TAB SAND [Suspect]
     Indication: ARTHRITIS
     Dosage: 50MG UP TO 3 DAILY
     Dates: start: 20080804

REACTIONS (4)
  - FEAR [None]
  - FEELING ABNORMAL [None]
  - HYPOAESTHESIA [None]
  - HYPOAESTHESIA FACIAL [None]
